FAERS Safety Report 9017322 (Version 3)
Quarter: 2013Q1

REPORT INFORMATION
  Report Type: Spontaneous
  Country: US (occurrence: US)
  Receive Date: 20130117
  Receipt Date: 20130212
  Transmission Date: 20140127
  Serious: Yes (Other)
  Sender: FDA-Public Use
  Company Number: US-PFIZER INC-2013017835

PATIENT
  Sex: Female

DRUGS (1)
  1. PREMARIN [Suspect]
     Dosage: 1.25 MG, UNK

REACTIONS (4)
  - Uterine haemorrhage [Unknown]
  - Ectopic pregnancy [Unknown]
  - Nausea [Unknown]
  - Abdominal pain [Unknown]
